FAERS Safety Report 6291270-6 (Version None)
Quarter: 2009Q3

REPORT INFORMATION
  Report Type: 
  Country: None (occurrence: None)
  Receive Date: 20090730
  Receipt Date: 20090724
  Transmission Date: 20100115
  Serious: Yes (Hospitalization, Other)
  Sender: FDA-Public Use
  Company Number: JP-BAYER-200812276BYL

PATIENT
  Age: 62 Year
  Sex: Male
  Weight: 55 kg

DRUGS (36)
  1. NEXAVAR [Suspect]
     Indication: RENAL CELL CARCINOMA STAGE IV
     Dosage: TOTAL DAILY DOSE: 800 MG  UNIT DOSE: 200 MG
     Route: 048
     Dates: start: 20080716, end: 20081101
  2. NEXAVAR [Suspect]
     Dosage: TOTAL DAILY DOSE: 400 MG  UNIT DOSE: 200 MG
     Route: 048
     Dates: start: 20081106, end: 20081115
  3. NEXAVAR [Suspect]
     Dosage: TOTAL DAILY DOSE: 400 MG  UNIT DOSE: 200 MG
     Route: 048
     Dates: start: 20081120, end: 20081219
  4. NEXAVAR [Suspect]
     Dosage: TOTAL DAILY DOSE: 800 MG  UNIT DOSE: 200 MG
     Route: 048
     Dates: end: 20090713
  5. NEXAVAR [Suspect]
     Dosage: TOTAL DAILY DOSE: 800 MG  UNIT DOSE: 200 MG
     Route: 048
     Dates: start: 20090317, end: 20090414
  6. NEXAVAR [Suspect]
     Dosage: TOTAL DAILY DOSE: 400 MG  UNIT DOSE: 200 MG
     Route: 048
     Dates: start: 20081220, end: 20090316
  7. PURSENNID [Concomitant]
     Indication: CONSTIPATION
     Dosage: UNIT DOSE: 12 MG
     Route: 048
  8. PURSENNID [Concomitant]
     Dosage: TOTAL DAILY DOSE: 36 MG  UNIT DOSE: 12 MG
     Route: 048
     Dates: start: 20080805
  9. PURSENNID [Concomitant]
     Dosage: TOTAL DAILY DOSE: 36 MG  UNIT DOSE: 12 MG
     Route: 048
     Dates: start: 20081104
  10. LAXOBERON [Concomitant]
     Indication: CONSTIPATION
     Dosage: UNIT DOSE: 10 ML
     Route: 048
  11. LAXOBERON [Concomitant]
     Dosage: TOTAL DAILY DOSE: 7.5 MG
     Route: 048
     Dates: start: 20081121
  12. MAGMITT [Concomitant]
     Dosage: TOTAL DAILY DOSE: 990 MG  UNIT DOSE: 330 MG
     Route: 048
  13. MAGMITT [Concomitant]
     Dosage: TOTAL DAILY DOSE: 990 MG  UNIT DOSE: 330 MG
     Route: 048
     Dates: start: 20090331
  14. MAGMITT [Concomitant]
     Dosage: TOTAL DAILY DOSE: 1980 MG  UNIT DOSE: 330 MG
     Route: 048
     Dates: start: 20080803
  15. ANCARON [Concomitant]
     Dosage: TOTAL DAILY DOSE: 200 MG  UNIT DOSE: 100 MG
     Route: 048
  16. T:K [Concomitant]
     Dosage: APPLICATION FOR RIGHT LEG
     Route: 061
  17. CEFDINIR [Concomitant]
     Dosage: TOTAL DAILY DOSE: 300 MG
     Route: 048
  18. AMOBAN [Concomitant]
     Indication: INSOMNIA
     Dosage: UNTIL 1 TIME/DAY
     Route: 048
  19. PRIMPERAN [Concomitant]
     Indication: NAUSEA
     Dosage: UNIT DOSE: 5 MG
     Route: 048
     Dates: end: 20081126
  20. TELEMINSOFT [Concomitant]
     Indication: CONSTIPATION
     Dosage: UNIT DOSE: 10 MG
     Route: 054
  21. LULICON [Concomitant]
     Dosage: APPLICATION FOR NAILS
     Route: 061
     Dates: start: 20081024
  22. MUCOSTA [Concomitant]
     Dosage: UNIT DOSE: 100 MG
     Route: 048
     Dates: start: 20081111
  23. MUCOSTA [Concomitant]
     Dosage: TOTAL DAILY DOSE: 300 MG  UNIT DOSE: 100 MG
     Route: 048
     Dates: start: 20081117
  24. OXINORM [Concomitant]
     Indication: PAIN
     Dosage: UNIT DOSE: 0.5 %
     Route: 048
     Dates: start: 20081123
  25. OXINORM [Concomitant]
     Dosage: UNIT DOSE: 0.5 %
     Route: 048
     Dates: start: 20081115
  26. OXYCONTIN [Concomitant]
     Dosage: TOTAL DAILY DOSE: 10 MG  UNIT DOSE: 5 MG
     Route: 048
     Dates: start: 20081115, end: 20081128
  27. NOVAMIN [Concomitant]
     Indication: NAUSEA
     Dosage: TOTAL DAILY DOSE: 15 MG  UNIT DOSE: 5 MG
     Route: 048
     Dates: start: 20081125
  28. NOVAMIN [Concomitant]
     Dosage: TOTAL DAILY DOSE: 5 MG  UNIT DOSE: 5 MG
     Route: 048
     Dates: start: 20081124
  29. NOVAMIN [Concomitant]
     Dosage: UNIT DOSE: 5 MG
     Route: 048
     Dates: start: 20081116
  30. DUROTEP [Concomitant]
     Dosage: UNIT DOSE: 4.2 MG
     Route: 062
     Dates: start: 20081120, end: 20081120
  31. DUROTEP [Concomitant]
     Dosage: UNIT DOSE: 4.2 MG
     Route: 062
     Dates: start: 20081201
  32. TRAVELMIN [Concomitant]
     Dosage: AS USED: 1 DF
     Route: 048
     Dates: start: 20081129
  33. LASIX [Concomitant]
     Dosage: TOTAL DAILY DOSE: 20 MG  UNIT DOSE: 20 MG
     Route: 048
     Dates: start: 20081219
  34. DALACIN T [Concomitant]
     Dosage: APPLICATION FOR LOWER THIGHS
     Route: 061
     Dates: start: 20090317
  35. M:T [Concomitant]
     Dosage: APPLICATION FOR HANDS AND ELBOWS
     Route: 061
     Dates: start: 20090414
  36. GASTER D [Concomitant]
     Dosage: TOTAL DAILY DOSE: 20 MG  UNIT DOSE: 10 MG
     Route: 048

REACTIONS (13)
  - ALOPECIA [None]
  - ASCITES [None]
  - BLOOD ALBUMIN DECREASED [None]
  - BLOOD SODIUM DECREASED [None]
  - DECREASED APPETITE [None]
  - GENERALISED OEDEMA [None]
  - HYPERTENSION [None]
  - HYPOTHYROIDISM [None]
  - OEDEMA PERIPHERAL [None]
  - PALMAR-PLANTAR ERYTHRODYSAESTHESIA SYNDROME [None]
  - PANCREATIC ENZYME ABNORMALITY [None]
  - PROTEIN TOTAL DECREASED [None]
  - WHITE BLOOD CELL COUNT DECREASED [None]
